FAERS Safety Report 23518955 (Version 4)
Quarter: 2024Q1

REPORT INFORMATION
  Report Type: Report from Study
  Country: AR (occurrence: AR)
  Receive Date: 20240213
  Receipt Date: 20240307
  Transmission Date: 20240410
  Serious: Yes (Other)
  Sender: FDA-Public Use
  Company Number: AR-002147023-NVSC2024AR028638

PATIENT
  Age: 49 Year
  Sex: Female

DRUGS (2)
  1. COSENTYX [Suspect]
     Active Substance: SECUKINUMAB
     Indication: Psoriasis
     Dosage: 300 MG, QMO (AUTOINJECTOR)
     Route: 058
     Dates: start: 20231215, end: 20240205
  2. ADALIMUMAB [Concomitant]
     Active Substance: ADALIMUMAB\ISOPROPYL ALCOHOL
     Indication: Pustular psoriasis
     Dosage: 40 MG (EVERY 15 DAYS)
     Route: 058
     Dates: start: 20181017, end: 20231006

REACTIONS (9)
  - Skin plaque [Recovered/Resolved]
  - Acute febrile neutrophilic dermatosis [Recovered/Resolved]
  - Lymphangitis [Unknown]
  - Erysipelas [Unknown]
  - Limb injury [Unknown]
  - Lymphadenopathy [Unknown]
  - Condition aggravated [Unknown]
  - Hypersensitivity [Unknown]
  - Infection [Unknown]

NARRATIVE: CASE EVENT DATE: 20231212
